FAERS Safety Report 16947433 (Version 2)
Quarter: 2019Q4

REPORT INFORMATION
  Report Type: Spontaneous
  Country: SE (occurrence: SE)
  Receive Date: 20191022
  Receipt Date: 20191202
  Transmission Date: 20200122
  Serious: Yes (Other)
  Sender: FDA-Public Use
  Company Number: SE-ALLERGAN-1942032US

PATIENT
  Sex: Female

DRUGS (10)
  1. STESOLID [Concomitant]
     Active Substance: DIAZEPAM
  2. FOLACIN [Concomitant]
  3. TRAMADOL. [Concomitant]
     Active Substance: TRAMADOL
  4. BISOPROLOL [Concomitant]
     Active Substance: BISOPROLOL
  5. BOTOX [Suspect]
     Active Substance: ONABOTULINUMTOXINA
     Dosage: 50 UNITS, SINGLE
     Route: 065
     Dates: start: 20191008, end: 20191008
  6. ALVEDON [Concomitant]
     Active Substance: ACETAMINOPHEN
  7. PARAFLEX [Concomitant]
     Active Substance: CHLORZOXAZONE
  8. IMOVANE [Concomitant]
     Active Substance: ZOPICLONE
  9. BOTOX [Suspect]
     Active Substance: ONABOTULINUMTOXINA
     Indication: NECK PAIN
     Dosage: 50 UNITS, SINGLE
     Route: 065
     Dates: start: 20191008, end: 20191008
  10. BETAPRED [Concomitant]
     Active Substance: BETAMETHASONE SODIUM PHOSPHATE

REACTIONS (13)
  - Dysphagia [Not Recovered/Not Resolved]
  - Mastication disorder [Unknown]
  - Muscular weakness [Unknown]
  - Facial paresis [Unknown]
  - Headache [Unknown]
  - Dyspnoea [Unknown]
  - Muscle tightness [Unknown]
  - Product use in unapproved indication [Unknown]
  - Dysphonia [Unknown]
  - Musculoskeletal stiffness [Unknown]
  - Gait disturbance [Not Recovered/Not Resolved]
  - Weight decreased [Unknown]
  - Swelling [Unknown]

NARRATIVE: CASE EVENT DATE: 20191008
